FAERS Safety Report 25980472 (Version 2)
Quarter: 2025Q4

REPORT INFORMATION
  Report Type: Report from Study
  Country: AU (occurrence: AU)
  Receive Date: 20251030
  Receipt Date: 20251107
  Transmission Date: 20260118
  Serious: Yes (Other)
  Sender: ADC THERAPEUTICS
  Company Number: AU-BIOVITRUM-2025-AU-014555

PATIENT
  Sex: Male

DRUGS (2)
  1. ZYNLONTA [Suspect]
     Active Substance: LONCASTUXIMAB TESIRINE-LPYL
     Indication: Diffuse large B-cell lymphoma
     Dosage: EVERY 21 DAYS FOR 2 CYCLES
     Dates: start: 202509
  2. ZYNLONTA [Suspect]
     Active Substance: LONCASTUXIMAB TESIRINE-LPYL
     Dosage: 0.075 MG/KG EVERY 21 DAYS FOR SUBSEQUENT CYCLES

REACTIONS (3)
  - Cytopenia [Not Recovered/Not Resolved]
  - Neutropenia [Not Recovered/Not Resolved]
  - Erythema [Not Recovered/Not Resolved]

NARRATIVE: CASE EVENT DATE: 20251020
